FAERS Safety Report 25026433 (Version 1)
Quarter: 2025Q1

REPORT INFORMATION
  Report Type: Spontaneous
  Country: PL (occurrence: PL)
  Receive Date: 20250301
  Receipt Date: 20250301
  Transmission Date: 20250408
  Serious: Yes (Hospitalization, Other)
  Sender: AUROBINDO
  Company Number: PL-Adamed-2025-AER-00036

PATIENT
  Sex: Male

DRUGS (6)
  1. CARBOPLATIN [Suspect]
     Active Substance: CARBOPLATIN
     Indication: Hepatic failure
     Route: 065
  2. CARBOPLATIN [Suspect]
     Active Substance: CARBOPLATIN
     Indication: Blood bilirubin increased
  3. CARBOPLATIN [Suspect]
     Active Substance: CARBOPLATIN
     Indication: Renal failure
  4. PREDNISONE [Suspect]
     Active Substance: PREDNISONE
     Indication: Hepatic neuroendocrine tumour
     Dosage: 15 MILLIGRAM, ONCE A DAY
     Route: 048
  5. PENTASA [Suspect]
     Active Substance: MESALAMINE
     Indication: Hepatic neuroendocrine tumour
     Dosage: 3 GRAM, ONCE A DAY
     Route: 048
  6. ENOXAPARIN SODIUM [Suspect]
     Active Substance: ENOXAPARIN SODIUM
     Indication: Hepatic neuroendocrine tumour
     Dosage: 40 MILLIGRAM, ONCE A DAY
     Route: 058

REACTIONS (2)
  - Chromaturia [Unknown]
  - Ocular icterus [Unknown]
